FAERS Safety Report 5804854 (Version 2)
Quarter: 2025Q4

REPORT INFORMATION
  Report Type: Spontaneous
  Country: EU (occurrence: EU)
  Receive Date: 20050526
  Receipt Date: 20251014
  Transmission Date: 20260117
  Serious: Yes (Hospitalization, Other)
  Sender: NOVARTIS
  Company Number: None

PATIENT
  Age: 4 Month
  Sex: Male

DRUGS (5)
  1. CYCLOSPORINE [Suspect]
     Active Substance: CYCLOSPORINE
     Indication: Liver transplant
     Dosage: 5 MG/KG, BID
     Route: 065
  2. SIMULECT [Suspect]
     Active Substance: BASILIXIMAB
     Indication: Liver transplant
     Dosage: 10 MG, ONCE/SINGLE
     Route: 065
  3. SIMULECT [Suspect]
     Active Substance: BASILIXIMAB
     Indication: Liver transplant rejection
     Dosage: 10 MG, ONCE/SINGLE
     Route: 065
  4. PREDNISOLONE [Suspect]
     Active Substance: PREDNISOLONE
     Indication: Liver transplant
     Dosage: 60 MG/M2, QD
     Route: 065
  5. PREDNISOLONE [Suspect]
     Active Substance: PREDNISOLONE
     Indication: Liver transplant rejection
     Dosage: 0.1 MG/KG, QD
     Route: 065

REACTIONS (8)
  - Sepsis [Recovering/Resolving]
  - Hypogammaglobulinaemia [Recovering/Resolving]
  - Blood immunoglobulin G decreased [Recovered/Resolved]
  - Hypertension [Recovering/Resolving]
  - Tachycardia [Recovering/Resolving]
  - Pyrexia [Recovering/Resolving]
  - Oliguria [Recovering/Resolving]
  - Liver transplant rejection [Recovered/Resolved]
